FAERS Safety Report 8945049 (Version 2)
Quarter: 2013Q1

REPORT INFORMATION
  Report Type: Spontaneous
  Country: US (occurrence: US)
  Receive Date: 20121204
  Receipt Date: 20130102
  Transmission Date: 20140127
  Serious: No
  Sender: FDA-Public Use
  Company Number: US-AMGEN-USASP2012067002

PATIENT
  Age: 44 Year
  Sex: Female
  Weight: 70.3 kg

DRUGS (3)
  1. ENBREL [Suspect]
     Indication: RHEUMATOID ARTHRITIS
     Dosage: 50 MG, QWK
     Route: 058
     Dates: start: 201207
  2. ENBREL [Suspect]
     Indication: PSORIATIC ARTHROPATHY
  3. ARAVA [Concomitant]
     Dosage: 20 MG, UNK
     Route: 048

REACTIONS (4)
  - Blood glucose increased [Unknown]
  - Injection site erythema [Recovering/Resolving]
  - Injection site swelling [Recovering/Resolving]
  - Injection site reaction [Recovering/Resolving]
